FAERS Safety Report 8005749-X (Version None)
Quarter: 2011Q4

REPORT INFORMATION
  Report Type: 
  Country: None (occurrence: None)
  Receive Date: 20111223
  Receipt Date: 20111214
  Transmission Date: 20120403
  Serious: Yes (Hospitalization)
  Sender: FDA-Public Use
  Company Number: FI-NOVOPROD-329995

PATIENT

DRUGS (3)
  1. PROTAPHANE [Suspect]
     Dosage: UNK
     Route: 064
     Dates: start: 20060307, end: 20060331
  2. HUMALOG [Suspect]
     Indication: GESTATIONAL DIABETES
     Dosage: 2 IU, QID
     Route: 064
  3. PROTAPHANE [Suspect]
     Indication: GESTATIONAL DIABETES
     Dosage: UNK
     Route: 064
     Dates: start: 20060307, end: 20060331

REACTIONS (4)
  - FOETAL EXPOSURE DURING PREGNANCY [None]
  - HYPERBILIRUBINAEMIA [None]
  - PREMATURE BABY [None]
  - NEONATAL RESPIRATORY DISTRESS SYNDROME [None]
